FAERS Safety Report 23509633 (Version 1)
Quarter: 2024Q1

REPORT INFORMATION
  Report Type: Spontaneous
  Country: TR (occurrence: TR)
  Receive Date: 20240210
  Receipt Date: 20240210
  Transmission Date: 20240410
  Serious: Yes (Hospitalization)
  Sender: FDA-Public Use
  Company Number: TR-ABBVIE-5628558

PATIENT
  Sex: Male

DRUGS (4)
  1. VENETOCLAX [Suspect]
     Active Substance: VENETOCLAX
     Indication: Acute myelomonocytic leukaemia
     Route: 048
  2. VENETOCLAX [Suspect]
     Active Substance: VENETOCLAX
     Indication: Acute myelomonocytic leukaemia
     Route: 048
  3. VENETOCLAX [Suspect]
     Active Substance: VENETOCLAX
     Indication: Acute myelomonocytic leukaemia
     Route: 048
  4. DACOGEN [Concomitant]
     Active Substance: DECITABINE
     Indication: Product used for unknown indication

REACTIONS (9)
  - C-reactive protein increased [Unknown]
  - Pyrexia [Unknown]
  - Bone marrow reticulin fibrosis [Unknown]
  - Oropharyngeal pain [Unknown]
  - Diarrhoea [Unknown]
  - Diarrhoea [Recovered/Resolved]
  - Collagen disorder [Unknown]
  - Cryptitis [Unknown]
  - Tonsillitis [Unknown]
